FAERS Safety Report 5810547-9 (Version None)
Quarter: 2008Q3

REPORT INFORMATION
  Report Type: 
  Country: None (occurrence: None)
  Receive Date: 20080715
  Receipt Date: 20080703
  Transmission Date: 20090109
  Serious: Yes (Other)
  Sender: FDA-Public Use
  Company Number: JP-PFIZER INC-2008056431

PATIENT
  Age: 28 Year
  Sex: Female

DRUGS (4)
  1. ZOLOFT [Suspect]
     Route: 048
  2. HALCION [Suspect]
     Route: 048
  3. ALL OTHER THERAPEUTIC PRODUCTS [Suspect]
     Route: 048
  4. ALL OTHER NON-THERAPEUTIC PRODUCTS [Suspect]
     Route: 048

REACTIONS (2)
  - ALTERED STATE OF CONSCIOUSNESS [None]
  - SUICIDE ATTEMPT [None]
